FAERS Safety Report 21781025 (Version 1)
Quarter: 2022Q4

REPORT INFORMATION
  Report Type: Spontaneous
  Country: US (occurrence: US)
  Receive Date: 20221227
  Receipt Date: 20221227
  Transmission Date: 20230112
  Serious: No
  Sender: FDA-Public Use
  Company Number: US-JNJFOC-20221240158

PATIENT
  Age: 28 Year
  Sex: Female
  Weight: 64.4 kg

DRUGS (8)
  1. TYLENOL [Suspect]
     Active Substance: ACETAMINOPHEN
     Indication: Headache
     Route: 065
     Dates: start: 2022
  2. TRAMADOL [Concomitant]
     Active Substance: TRAMADOL
     Indication: Headache
     Route: 065
  3. TREPROSTINIL [Concomitant]
     Active Substance: TREPROSTINIL
     Indication: Pulmonary arterial hypertension
     Route: 048
     Dates: start: 20220906
  4. TREPROSTINIL [Concomitant]
     Active Substance: TREPROSTINIL
     Route: 048
  5. TREPROSTINIL [Concomitant]
     Active Substance: TREPROSTINIL
     Route: 048
  6. SILDENAFIL CITRATE [Concomitant]
     Active Substance: SILDENAFIL CITRATE
     Indication: Product used for unknown indication
     Route: 065
  7. ELIQUIS [Concomitant]
     Active Substance: APIXABAN
     Indication: Product used for unknown indication
     Route: 065
  8. AMBRISENTAN [Concomitant]
     Active Substance: AMBRISENTAN
     Indication: Product used for unknown indication
     Route: 065

REACTIONS (1)
  - Product use in unapproved indication [Unknown]

NARRATIVE: CASE EVENT DATE: 20220101
